FAERS Safety Report 13273095 (Version 1)
Quarter: 2017Q1

REPORT INFORMATION
  Report Type: Spontaneous
  Country: PT (occurrence: PT)
  Receive Date: 20170227
  Receipt Date: 20170227
  Transmission Date: 20170428
  Serious: Yes (Hospitalization, Disabling)
  Sender: FDA-Public Use
  Company Number: PT-ASTELLAS-2017US006600

PATIENT
  Age: 58 Year
  Sex: Female

DRUGS (6)
  1. BETMIGA [Suspect]
     Active Substance: MIRABEGRON
     Indication: URINARY INCONTINENCE
     Route: 048
     Dates: start: 20170210, end: 20170214
  2. MORFEX [Concomitant]
     Active Substance: FLURAZEPAM HYDROCHLORIDE
     Route: 048
  3. DIPLEXIL-R [Concomitant]
     Indication: PRODUCT USED FOR UNKNOWN INDICATION
     Route: 048
  4. FLEXIBAN [Concomitant]
     Indication: PRODUCT USED FOR UNKNOWN INDICATION
     Route: 048
  5. MORFEX [Concomitant]
     Active Substance: FLURAZEPAM HYDROCHLORIDE
     Indication: NERVOUSNESS
     Dosage: 15 MG, ONCE DAILY ( AT NIGHT)
     Route: 048
  6. DIPLEXIL-R [Concomitant]
     Dosage: 500 MG + 250 MG, UNKNOWN FREQ.
     Route: 048

REACTIONS (4)
  - Tremor [Recovered/Resolved]
  - Pruritus [Recovered/Resolved]
  - Tachycardia [Recovered/Resolved]
  - Hypertension [Recovered/Resolved]

NARRATIVE: CASE EVENT DATE: 20170212
